FAERS Safety Report 8418319-6 (Version None)
Quarter: 2012Q2

REPORT INFORMATION
  Report Type: 
  Country: None (occurrence: None)
  Receive Date: 20120607
  Receipt Date: 20120529
  Transmission Date: 20120825
  Serious: Yes (Hospitalization, Other)
  Sender: FDA-Public Use
  Company Number: BR-SANOFI-AVENTIS-2012SA038288

PATIENT
  Age: 59 Year
  Sex: Male
  Weight: 90 kg

DRUGS (9)
  1. SLOW-K [Concomitant]
     Route: 048
  2. HUMALOG [Concomitant]
     Dosage: DOSE: ACCORDING TO GLYCEMIA
     Route: 058
  3. ATENOLOL [Concomitant]
     Indication: BLOOD PRESSURE
     Dosage: STRENGTH: 50 MG
     Route: 048
  4. FLUOXETINE [Concomitant]
     Route: 048
  5. LANTUS [Suspect]
     Dosage: FORM: SYRINGE
     Route: 058
     Dates: start: 20020101
  6. LOSARTAN POTASSIUM [Concomitant]
     Indication: BLOOD PRESSURE
     Dosage: STRENGTH: 100 MG
     Route: 048
  7. AMIODARONE HCL [Concomitant]
     Indication: BLOOD PRESSURE
     Route: 048
  8. ACETYLSALICYLIC ACID SRT [Concomitant]
     Route: 048
  9. WARFARIN SODIUM [Concomitant]
     Route: 048

REACTIONS (8)
  - INFARCTION [None]
  - SEPTIC SHOCK [None]
  - NERVOUS SYSTEM DISORDER [None]
  - ARTERIAL OCCLUSIVE DISEASE [None]
  - PARALYSIS [None]
  - SEPSIS [None]
  - CEREBROVASCULAR ACCIDENT [None]
  - INFECTION [None]
